FAERS Safety Report 9772873 (Version 1)
Quarter: 2013Q4

REPORT INFORMATION
  Report Type: Spontaneous
  Country: IT (occurrence: IT)
  Receive Date: 20131219
  Receipt Date: 20131219
  Transmission Date: 20140711
  Serious: Yes (Hospitalization)
  Sender: FDA-Public Use
  Company Number: PHHY2013IT147455

PATIENT
  Age: 63 Year
  Sex: Male

DRUGS (2)
  1. METFORMIN [Suspect]
     Dates: start: 20120917, end: 20130916
  2. AMARYL [Suspect]
     Dates: start: 20120917, end: 20130916

REACTIONS (1)
  - Hypoglycaemic coma [Recovering/Resolving]
